FAERS Safety Report 4706679-9 (Version None)
Quarter: 2005Q3

REPORT INFORMATION
  Report Type: 
  Country: None (occurrence: None)
  Receive Date: 20050705
  Receipt Date: 20050606
  Transmission Date: 20060218
  Serious: Yes (Other)
  Sender: FDA-Public Use
  Company Number: 2005CG01100

PATIENT
  Age: 26020 Day
  Sex: Male
  Weight: 70 kg

DRUGS (1)
  1. NAROPIN [Suspect]
     Indication: POSTOPERATIVE ANALGESIA
     Route: 050
     Dates: start: 20050512, end: 20050512

REACTIONS (1)
  - MONOPARESIS [None]
